FAERS Safety Report 8890861 (Version 1)
Quarter: 2012Q4

REPORT INFORMATION
  Report Type: 
  Country: CN (occurrence: CN)
  Receive Date: 20121107
  Receipt Date: 20121107
  Transmission Date: 20130627
  Serious: Yes (Hospitalization)
  Sender: FDA-Public Use
  Company Number: CN-BAYER-2012-115117

PATIENT
  Age: 67 Year
  Sex: Female
  Weight: 52 kg

DRUGS (1)
  1. ACETYLSALICYLIC ACID({=100 MG) [Suspect]
     Indication: PRIMARY HYPERTENSION
     Dosage: 0.1 g, QD
     Route: 048
     Dates: start: 20110515, end: 20110529

REACTIONS (1)
  - Faeces discoloured [Recovered/Resolved]
